FAERS Safety Report 8938222 (Version 3)
Quarter: 2013Q1

REPORT INFORMATION
  Report Type: Report from Study
  Country: DE (occurrence: DE)
  Receive Date: 20121130
  Receipt Date: 20130214
  Transmission Date: 20140127
  Serious: Yes (Hospitalization)
  Sender: FDA-Public Use
  Company Number: DE-JNJFOC-20121113898

PATIENT
  Sex: Female

DRUGS (14)
  1. SIMPONI [Suspect]
     Indication: ANKYLOSING SPONDYLITIS
     Route: 058
     Dates: start: 201106, end: 20120809
  2. CONTRACEPTIVE [Concomitant]
     Route: 048
  3. FENTANYL [Concomitant]
  4. PALLADON [Concomitant]
  5. METEX [Concomitant]
  6. FOLIC ACID [Concomitant]
  7. NOVALGIN [Concomitant]
  8. TELFAST [Concomitant]
     Indication: URTICARIA
  9. NARAMIG [Concomitant]
     Indication: MIGRAINE
  10. APROVEL [Concomitant]
  11. VITAMIN B12 [Concomitant]
     Route: 058
  12. PREDNISOLONE [Concomitant]
  13. TEPILTA [Concomitant]
  14. ARCOXIA [Concomitant]

REACTIONS (3)
  - Encephalitic infection [Not Recovered/Not Resolved]
  - Drug eruption [Unknown]
  - Uterine leiomyoma [Unknown]
